FAERS Safety Report 7951196-6 (Version None)
Quarter: 2011Q4

REPORT INFORMATION
  Report Type: 
  Country: None (occurrence: None)
  Receive Date: 20111201
  Receipt Date: 20111128
  Transmission Date: 20120403
  Serious: Yes (Hospitalization)
  Sender: FDA-Public Use
  Company Number: PHEH2011US010348

PATIENT
  Sex: Female
  Weight: 49.887 kg

DRUGS (1)
  1. EXJADE [Suspect]
     Indication: SICKLE CELL ANAEMIA
     Dosage: 1250 MG, DAILY
     Route: 048
     Dates: start: 20060804

REACTIONS (2)
  - SICKLE CELL ANAEMIA WITH CRISIS [None]
  - CARDIAC FAILURE CONGESTIVE [None]
